FAERS Safety Report 6076481-7 (Version None)
Quarter: 2009Q1

REPORT INFORMATION
  Report Type: 
  Country: None (occurrence: None)
  Receive Date: 20090211
  Receipt Date: 20090211
  Transmission Date: 20090719
  Serious: No
  Sender: FDA-Public Use
  Company Number: None

PATIENT

DRUGS (2)
  1. KEPPRA [Suspect]
     Indication: CONVULSION
     Dosage: 500 BID PO
     Route: 048
     Dates: start: 20081229, end: 20090119
  2. KEPPRA [Suspect]
     Indication: HEADACHE
     Dosage: 500 BID PO
     Route: 048
     Dates: start: 20081229, end: 20090119

REACTIONS (6)
  - EPISTAXIS [None]
  - HYPERTENSION [None]
  - PARAESTHESIA ORAL [None]
  - SINUSITIS [None]
  - SOMNOLENCE [None]
  - TREMOR [None]
